FAERS Safety Report 7520290-6 (Version None)
Quarter: 2011Q2

REPORT INFORMATION
  Report Type: 
  Country: None (occurrence: None)
  Receive Date: 20110602
  Receipt Date: 20110530
  Transmission Date: 20111010
  Serious: Yes (Hospitalization)
  Sender: FDA-Public Use
  Company Number: KR-ABBOTT-10P-090-0689085-00

PATIENT
  Age: 35 Year
  Sex: Female
  Weight: 66 kg

DRUGS (13)
  1. OXYTOCIN 5IU [Concomitant]
     Indication: UTERINE CONTRACTIONS ABNORMAL
     Route: 042
     Dates: start: 20100914, end: 20100915
  2. METHERGINE [Concomitant]
     Indication: UTERINE CONTRACTIONS ABNORMAL
     Route: 048
     Dates: start: 20100917, end: 20100921
  3. CEFMINOX [Concomitant]
     Indication: CAESAREAN SECTION
     Route: 042
     Dates: start: 20100913, end: 20100916
  4. LAMIVUDINE (EPIVIR HBV) [Concomitant]
     Indication: ANTIRETROVIRAL THERAPY
     Dosage: 300MG DAILY
     Dates: start: 20100513
  5. KALETRA [Suspect]
     Route: 048
     Dates: start: 20100407, end: 20100906
  6. ABACAVIR [Concomitant]
     Indication: ANTIRETROVIRAL THERAPY
     Dosage: 600MG DAILY
     Dates: start: 20100513
  7. ACECLOFENAC [Concomitant]
     Indication: UTERINE CONTRACTIONS ABNORMAL
     Route: 048
     Dates: start: 20100916, end: 20100921
  8. COMBIVIR [Concomitant]
     Indication: ANTIRETROVIRAL THERAPY
     Dosage: 2 TABS DAILY
     Dates: start: 20100407, end: 20100512
  9. MAGNESIUM HYDROXIDE [Concomitant]
     Indication: LAXATIVE SUPPORTIVE CARE
     Route: 048
     Dates: start: 20100917, end: 20100921
  10. RANITIDINE [Concomitant]
     Indication: ANTACID THERAPY
     Route: 048
     Dates: start: 20100916, end: 20100921
  11. KALETRA [Suspect]
     Indication: HIV INFECTION
     Route: 048
     Dates: start: 20100917
  12. KALETRA [Suspect]
     Route: 048
     Dates: start: 20100907, end: 20100916
  13. METHERGINE [Concomitant]
     Route: 048
     Dates: start: 20100915, end: 20100916

REACTIONS (5)
  - ANAEMIA [None]
  - NAUSEA [None]
  - PREMATURE LABOUR [None]
  - VAGINAL HAEMORRHAGE [None]
  - VOMITING [None]
